FAERS Safety Report 7486763-X (Version None)
Quarter: 2011Q2

REPORT INFORMATION
  Report Type: 
  Country: None (occurrence: None)
  Receive Date: 20110517
  Receipt Date: 20110505
  Transmission Date: 20111010
  Serious: Yes (Hospitalization, Other)
  Sender: FDA-Public Use
  Company Number: US-ELI_LILLY_AND_COMPANY-US201105001772

PATIENT
  Sex: Male

DRUGS (2)
  1. LANTUS [Concomitant]
     Indication: TYPE 2 DIABETES MELLITUS
     Dosage: 72 U, QD
     Route: 058
     Dates: start: 20090101
  2. HUMALOG [Suspect]

REACTIONS (4)
  - BLOOD GLUCOSE DECREASED [None]
  - CARDIAC DISORDER [None]
  - WRONG DRUG ADMINISTERED [None]
  - VISUAL IMPAIRMENT [None]
